FAERS Safety Report 10210479 (Version 1)
Quarter: 2014Q2

REPORT INFORMATION
  Report Type: Spontaneous
  Country: US (occurrence: None)
  Receive Date: 20140530
  Receipt Date: 20140530
  Transmission Date: 20141212
  Serious: No
  Sender: FDA-Public Use
  Company Number: None

PATIENT
  Age: 63 Year
  Sex: Male

DRUGS (8)
  1. COPAXONE [Suspect]
     Indication: MULTIPLE SCLEROSIS
     Route: 058
     Dates: start: 20121128
  2. POTASSIUM [Concomitant]
  3. LOTENSIN [Concomitant]
  4. NORVASC [Concomitant]
  5. METFORMIN [Concomitant]
  6. METOPROLOL [Concomitant]
  7. TERAZOSIN [Concomitant]
  8. ALDACTONE [Concomitant]

REACTIONS (1)
  - Diplopia [None]
